FAERS Safety Report 23251802 (Version 1)
Quarter: 2023Q4

REPORT INFORMATION
  Report Type: Spontaneous
  Country: US (occurrence: None)
  Receive Date: 20231130
  Receipt Date: 20231130
  Transmission Date: 20240109
  Serious: Yes (Hospitalization)
  Sender: FDA-Public Use
  Company Number: None

PATIENT
  Age: 53 Year
  Sex: Male

DRUGS (1)
  1. SPRYCEL [Suspect]
     Active Substance: DASATINIB
     Dosage: FREQUENCY : DAILY;?

REACTIONS (8)
  - Pulmonary arterial hypertension [None]
  - Constipation [None]
  - Diarrhoea [None]
  - Peripheral swelling [None]
  - Pulmonary oedema [None]
  - Cardiac disorder [None]
  - Pancreatitis [None]
  - Alopecia [None]
